FAERS Safety Report 15845209 (Version 4)
Quarter: 2019Q1

REPORT INFORMATION
  Report Type: Spontaneous
  Country: RO (occurrence: RO)
  Receive Date: 20190119
  Receipt Date: 20190219
  Transmission Date: 20190417
  Serious: Yes (Hospitalization, Other)
  Sender: FDA-Public Use
  Company Number: RO-ACCORD-102799

PATIENT
  Age: 49 Year
  Sex: Female

DRUGS (10)
  1. METHYLPREDNISOLONE. [Suspect]
     Active Substance: METHYLPREDNISOLONE
     Indication: VISUAL ACUITY REDUCED
     Dosage: 1 G, BID (DIVIDED IN TWO DOSES),32 G/DAY DECREASING GRADUALLY
     Route: 042
     Dates: start: 2015, end: 2016
  2. METHYLPREDNISOLONE. [Concomitant]
     Active Substance: METHYLPREDNISOLONE
     Dosage: DIVIDED IN TWO DOSES
     Route: 042
  3. ARIPIPRAZOLE. [Suspect]
     Active Substance: ARIPIPRAZOLE
     Indication: SCHIZOPHRENIA
     Dosage: UNK
     Route: 065
  4. TRIAMCINOLONE [Suspect]
     Active Substance: TRIAMCINOLONE
     Dates: start: 2015, end: 2016
  5. TRIAMCINOLONE [Concomitant]
     Active Substance: TRIAMCINOLONE
     Route: 065
  6. DEXAMETHASONE. [Suspect]
     Active Substance: DEXAMETHASONE
     Indication: PRODUCT USED FOR UNKNOWN INDICATION
     Dosage: UNK
     Route: 065
     Dates: start: 2015
  7. BEVACIZUMAB. [Concomitant]
     Active Substance: BEVACIZUMAB
     Dates: start: 2015, end: 2016
  8. METHOTREXATE. [Concomitant]
     Active Substance: METHOTREXATE
     Indication: CHOROIDITIS
     Dosage: 12.5 MG, QW
     Route: 065
     Dates: start: 201605
  9. VANCOMYCIN [Concomitant]
     Active Substance: VANCOMYCIN
     Indication: PRODUCT USED FOR UNKNOWN INDICATION
     Dosage: UNK
     Route: 065
  10. PREDNISONE. [Suspect]
     Active Substance: PREDNISONE
     Indication: UVEITIS
     Dosage: LOW DOSE
     Route: 065
     Dates: start: 201605

REACTIONS (7)
  - Retinal exudates [Unknown]
  - Choroiditis [Recovering/Resolving]
  - Drug ineffective [Unknown]
  - Uveitis [Recovering/Resolving]
  - Chorioretinopathy [Recovering/Resolving]
  - Birdshot chorioretinopathy [Recovering/Resolving]
  - Cushing^s syndrome [Unknown]
